FAERS Safety Report 8395220-8 (Version None)
Quarter: 2012Q2

REPORT INFORMATION
  Report Type: 
  Country: None (occurrence: None)
  Receive Date: 20120530
  Receipt Date: 20120517
  Transmission Date: 20120825
  Serious: No
  Sender: FDA-Public Use
  Company Number: US-JNJFOC-20120515212

PATIENT
  Sex: Female

DRUGS (8)
  1. DURAGESIC-100 [Suspect]
     Route: 062
     Dates: start: 20100101, end: 20100101
  2. DURAGESIC-100 [Suspect]
     Route: 062
     Dates: start: 20100101, end: 20100101
  3. DURAGESIC-100 [Suspect]
     Route: 062
     Dates: start: 20080101, end: 20080101
  4. CYMBALTA [Suspect]
     Indication: FIBROMYALGIA
     Route: 048
     Dates: start: 20080101, end: 20100101
  5. DURAGESIC-100 [Suspect]
     Route: 062
     Dates: start: 20070101, end: 20080101
  6. DURAGESIC-100 [Suspect]
     Route: 062
     Dates: start: 20100101, end: 20100101
  7. DURAGESIC-100 [Suspect]
     Route: 062
     Dates: start: 20100101
  8. DURAGESIC-100 [Suspect]
     Indication: FIBROMYALGIA
     Route: 062
     Dates: start: 20080101, end: 20080101

REACTIONS (5)
  - DRUG PRESCRIBING ERROR [None]
  - MIGRAINE [None]
  - MATERNAL EXPOSURE DURING PREGNANCY [None]
  - WRONG TECHNIQUE IN DRUG USAGE PROCESS [None]
  - DRUG INEFFECTIVE [None]
